FAERS Safety Report 8342598 (Version 2)
Quarter: 2013Q4

REPORT INFORMATION
  Report Type: Spontaneous
  Country: US (occurrence: US)
  Receive Date: 20120118
  Receipt Date: 20131030
  Transmission Date: 20140711
  Serious: Yes (Other)
  Sender: FDA-Public Use
  Company Number: US-ROCHE-794414

PATIENT
  Age: 19 Year
  Sex: Male
  Weight: 63.56 kg

DRUGS (4)
  1. ACCUTANE [Suspect]
     Indication: ACNE
     Route: 065
     Dates: start: 20060106, end: 20060630
  2. ACCUTANE [Suspect]
     Route: 065
     Dates: start: 20060209, end: 20060630
  3. VICODIN [Concomitant]
  4. TRIAMCINOLONE [Concomitant]

REACTIONS (9)
  - Inflammatory bowel disease [Unknown]
  - Suicidal ideation [Unknown]
  - Intestinal obstruction [Unknown]
  - Irritable bowel syndrome [Unknown]
  - Dermatitis atopic [Unknown]
  - Dry skin [Unknown]
  - Dermatitis contact [Unknown]
  - Epistaxis [Unknown]
  - Dry mouth [Unknown]
